FAERS Safety Report 15530760 (Version 1)
Quarter: 2018Q4

REPORT INFORMATION
  Report Type: Spontaneous
  Country: TH (occurrence: TH)
  Receive Date: 20181018
  Receipt Date: 20181018
  Transmission Date: 20190205
  Serious: Yes (Death)
  Sender: FDA-Public Use
  Company Number: TH-BEH-2018095864

PATIENT
  Age: 13 Year
  Sex: Female

DRUGS (3)
  1. ETOPOSIDE. [Suspect]
     Active Substance: ETOPOSIDE
     Route: 065
  2. HUMAN IMMUNOGLOBULIN IV (INN) [Suspect]
     Active Substance: HUMAN IMMUNOGLOBULIN G
     Indication: HAEMOPHAGOCYTIC LYMPHOHISTIOCYTOSIS
     Route: 042
  3. DEXAMETHASONE                      /00016002/ [Suspect]
     Active Substance: DEXAMETHASONE SODIUM PHOSPHATE
     Route: 065

REACTIONS (1)
  - Drug ineffective for unapproved indication [Fatal]
